FAERS Safety Report 4538238-5 (Version None)
Quarter: 2004Q4

REPORT INFORMATION
  Report Type: 
  Country: None (occurrence: None)
  Receive Date: 20041227
  Receipt Date: 20041215
  Transmission Date: 20050328
  Serious: Yes (Hospitalization, Other)
  Sender: FDA-Public Use
  Company Number: US-JNJFOC-20040902529

PATIENT
  Sex: Male
  Weight: 69.85 kg

DRUGS (4)
  1. REMICADE [Suspect]
     Indication: CROHN'S DISEASE
     Route: 042
  2. ASACOL [Concomitant]
     Indication: CROHN'S DISEASE
  3. 6MP [Concomitant]
     Indication: CROHN'S DISEASE
  4. SYNTHROID [Concomitant]
     Indication: HYPOTHYROIDISM

REACTIONS (3)
  - CROHN'S DISEASE [None]
  - GLIOBLASTOMA MULTIFORME [None]
  - NEOPLASM RECURRENCE [None]
